FAERS Safety Report 19226812 (Version 1)
Quarter: 2021Q2

REPORT INFORMATION
  Report Type: Report from Study
  Country: US (occurrence: US)
  Receive Date: 20210506
  Receipt Date: 20210506
  Transmission Date: 20210717
  Serious: Yes (Other)
  Sender: FDA-Public Use
  Company Number: US-MYLANLABS-2021M1025585

PATIENT
  Sex: Female
  Weight: 109 kg

DRUGS (1)
  1. GLATIRAMER ACETATE INJECTION [Suspect]
     Active Substance: GLATIRAMER ACETATE
     Indication: MULTIPLE SCLEROSIS
     Dosage: 3 X/ WEEK

REACTIONS (6)
  - Multiple sclerosis [Unknown]
  - Pain [Unknown]
  - Erythema [Unknown]
  - Product dose omission issue [Unknown]
  - Pruritus [Unknown]
  - Swelling [Unknown]
